FAERS Safety Report 5125072-0 (Version None)
Quarter: 2006Q4

REPORT INFORMATION
  Report Type: 
  Country: None (occurrence: None)
  Receive Date: 20061010
  Receipt Date: 20061010
  Transmission Date: 20070319
  Serious: Yes (Hospitalization)
  Sender: FDA-Public Use
  Company Number: None

PATIENT
  Age: 32 Year
  Sex: Female
  Weight: 142.8831 kg

DRUGS (2)
  1. BIAXIN XL [Suspect]
     Indication: SINUSITIS
     Dosage: 2 TABLETS ONCE DAILY PO
     Route: 048
     Dates: start: 20060823, end: 20060901
  2. MAXIPHEN DM NDC 66870-020-01 MCR AMERICAN PHARMACEUTICALS [Suspect]
     Indication: SINUSITIS
     Dosage: 1 TABLET BID PO
     Route: 048
     Dates: start: 20060823, end: 20060901

REACTIONS (2)
  - MANIA [None]
  - PSYCHOTIC DISORDER [None]
